FAERS Safety Report 19042839 (Version 1)
Quarter: 2021Q1

REPORT INFORMATION
  Report Type: Spontaneous
  Country: FR (occurrence: US)
  Receive Date: 20210323
  Receipt Date: 20210323
  Transmission Date: 20210420
  Serious: Yes (Death, Other)
  Sender: FDA-Public Use
  Company Number: FR-SUN PHARMACEUTICAL INDUSTRIES LTD-2021R1-286962

PATIENT
  Age: 2 Year
  Sex: Female

DRUGS (10)
  1. METOCLOPRAMIDE. [Suspect]
     Active Substance: METOCLOPRAMIDE
     Indication: QUADRIPLEGIA
  2. PHENOBARBITAL. [Suspect]
     Active Substance: PHENOBARBITAL
     Indication: QUADRIPLEGIA
  3. BOTOX [Suspect]
     Active Substance: ONABOTULINUMTOXINA
     Indication: CEREBRAL PALSY
  4. RANITIDINE. [Suspect]
     Active Substance: RANITIDINE
     Indication: QUADRIPLEGIA
  5. BOTOX [Suspect]
     Active Substance: ONABOTULINUMTOXINA
     Indication: QUADRIPLEGIA
     Dosage: UNK
     Route: 065
  6. BACLOFEN. [Suspect]
     Active Substance: BACLOFEN
     Indication: QUADRIPLEGIA
  7. PHENOBARBITAL. [Suspect]
     Active Substance: PHENOBARBITAL
     Indication: CEREBRAL PALSY
     Dosage: UNK
     Route: 065
  8. RANITIDINE. [Suspect]
     Active Substance: RANITIDINE
     Indication: CEREBRAL PALSY
     Dosage: UNK
     Route: 065
  9. BACLOFEN. [Suspect]
     Active Substance: BACLOFEN
     Indication: CEREBRAL PALSY
     Dosage: UNK
     Route: 065
  10. METOCLOPRAMIDE. [Suspect]
     Active Substance: METOCLOPRAMIDE
     Indication: CEREBRAL PALSY
     Dosage: UNK
     Route: 065

REACTIONS (1)
  - Death [Fatal]
